FAERS Safety Report 8129400-3 (Version None)
Quarter: 2011Q4

REPORT INFORMATION
  Report Type: 
  Country: None (occurrence: None)
  Receive Date: 20111227
  Receipt Date: 20111122
  Transmission Date: 20120403
  Serious: No
  Sender: FDA-Public Use
  Company Number: PHEH2011US06526

PATIENT
  Age: 24 Year
  Sex: Female

DRUGS (5)
  1. CYMBALTA [Concomitant]
  2. PROPRANOLOL [Concomitant]
  3. SUMATRIPTAN SUCCINATE (IMITREX) [Concomitant]
  4. GILENYA [Suspect]
     Indication: MULTIPLE SCLEROSIS
     Dosage: 0.5 MG, QD, ORAL
     Route: 048
     Dates: start: 20110927
  5. AMANTADINE HCL [Concomitant]

REACTIONS (3)
  - CHILLS [None]
  - NAUSEA [None]
  - FATIGUE [None]
